FAERS Safety Report 11583928 (Version 1)
Quarter: 2015Q4

REPORT INFORMATION
  Report Type: Spontaneous
  Country: US (occurrence: US)
  Receive Date: 20151001
  Receipt Date: 20151001
  Transmission Date: 20160304
  Serious: No
  Sender: FDA-Public Use
  Company Number: US-ROCHE-669196

PATIENT
  Age: 48 Year
  Sex: Male
  Weight: 102.1 kg

DRUGS (3)
  1. PEGASYS [Suspect]
     Active Substance: PEGINTERFERON ALFA-2A
     Indication: HEPATITIS C
     Dosage: ROUTE: INJECTION
     Route: 050
  2. COPEGUS [Suspect]
     Active Substance: RIBAVIRIN
     Indication: HEPATITIS C
     Route: 048
  3. PROCRIT [Concomitant]
     Active Substance: ERYTHROPOIETIN
     Route: 065

REACTIONS (5)
  - Judgement impaired [Unknown]
  - Anxiety [Unknown]
  - Disturbance in attention [Unknown]
  - Reflexes abnormal [Unknown]
  - Loss of libido [Unknown]
